FAERS Safety Report 5798326-2 (Version None)
Quarter: 2008Q2

REPORT INFORMATION
  Report Type: 
  Country: None (occurrence: None)
  Receive Date: 20080601
  Receipt Date: 20080127
  Transmission Date: 20081010
  Serious: No
  Sender: FDA-Public Use
  Company Number: US200801005954

PATIENT
  Sex: Female

DRUGS (3)
  1. BYETTA [Suspect]
     Indication: TYPE 2 DIABETES MELLITUS
     Dosage: 5 UG, 2/D, SUBCUTANEOUS
     Route: 058
     Dates: start: 20080126
  2. ACTOS /USA/ (PIOGLITAZONE HYDROCHLORIDE) [Concomitant]
  3. GLUCOPHAGE [Concomitant]

REACTIONS (1)
  - HYPERGLYCAEMIA [None]
